FAERS Safety Report 6387886-9 (Version None)
Quarter: 2009Q3

REPORT INFORMATION
  Report Type: 
  Country: None (occurrence: None)
  Receive Date: 20090930
  Receipt Date: 20090921
  Transmission Date: 20100115
  Serious: Yes (Hospitalization)
  Sender: FDA-Public Use
  Company Number: 230111J09BRA

PATIENT
  Age: 70 Year
  Sex: Female

DRUGS (3)
  1. REBIF [Suspect]
     Indication: RELAPSING-REMITTING MULTIPLE SCLEROSIS
     Dosage: 44 MCG, 3 IN 1 WEEKS
     Dates: start: 20041119, end: 20081225
  2. CARVEDILOL [Concomitant]
  3. DIURETIC (MEDICATION NOT INFORMED) (DIURETICS) [Concomitant]

REACTIONS (1)
  - SPEECH DISORDER [None]
